FAERS Safety Report 16087127 (Version 1)
Quarter: 2020Q3

REPORT INFORMATION
  Report Type: Report from Study
  Country: SG (occurrence: SG)
  Receive Date: 20190319
  Receipt Date: 20190319
  Transmission Date: 20201105
  Serious: Yes (Death, Other)
  Sender: FDA-Public Use
  Company Number: SG-BRISTOL-MYERS SQUIBB COMPANY-BMS-2019-025775

PATIENT
  Age: 49 Year
  Sex: Male

DRUGS (4)
  1. ADRENALINE                         /00003901/ [Concomitant]
     Active Substance: EPINEPHRINE
     Indication: PRODUCT USED FOR UNKNOWN INDICATION
     Dosage: UNK
     Route: 065
     Dates: start: 20190314
  2. IPILIMUMAB [Suspect]
     Active Substance: IPILIMUMAB
     Indication: NASOPHARYNGEAL CANCER
     Dosage: UNK
     Route: 042
     Dates: start: 20190107, end: 20190306
  3. NIVOLUMAB [Suspect]
     Active Substance: NIVOLUMAB
     Indication: NASOPHARYNGEAL CANCER
     Dosage: UNK
     Route: 042
     Dates: start: 20190107, end: 20190306
  4. ETORICOXIB. [Suspect]
     Active Substance: ETORICOXIB
     Indication: PAIN
     Dosage: 90 MILLIGRAM, PRN
     Route: 048
     Dates: start: 20190107, end: 20190306

REACTIONS (1)
  - Haematemesis [Fatal]

NARRATIVE: CASE EVENT DATE: 20190314
